FAERS Safety Report 10900014 (Version 1)
Quarter: 2015Q1

REPORT INFORMATION
  Report Type: Spontaneous
  Country: US (occurrence: US)
  Receive Date: 20150310
  Receipt Date: 20150310
  Transmission Date: 20150721
  Serious: Yes (Hospitalization)
  Sender: FDA-Public Use
  Company Number: US-PFIZER INC-2015080978

PATIENT
  Age: 69 Year
  Sex: Female

DRUGS (21)
  1. PREDNISONE. [Concomitant]
     Active Substance: PREDNISONE
     Indication: INFLAMMATION
     Dosage: 12.5 MG, 1X/DAY
  2. ADVIL [Concomitant]
     Active Substance: IBUPROFEN
     Indication: COUGH
     Dosage: 50 ?G, 2X/DAY
  3. FERROUS GLUCONATE [Concomitant]
     Active Substance: FERROUS GLUCONATE
     Dosage: 240 MG, DAILY
  4. DENOSUMAB [Concomitant]
     Active Substance: DENOSUMAB
     Indication: OSTEOPENIA
     Dosage: UNK (60MG/ML SYRINGE EVERY 6 MONTH)
     Route: 058
  5. LISINOPRIL. [Concomitant]
     Active Substance: LISINOPRIL
     Dosage: 10 MG, 1X/DAY
  6. LIPITOR [Concomitant]
     Active Substance: ATORVASTATIN CALCIUM
     Dosage: 10 MG, 1X/DAY
  7. ALBUTEROL HFA [Concomitant]
     Active Substance: ALBUTEROL SULFATE
     Indication: BRONCHOSPASM
     Dosage: 20 ?G, AS NEEDED (GRAMS 1-2 PILLS AS NEEDED)
  8. COUMADINE [Concomitant]
     Active Substance: WARFARIN SODIUM
     Dosage: UNK, AS NEEDED
  9. ASPIRIN. [Concomitant]
     Active Substance: ASPIRIN
     Indication: CARDIAC DISORDER
     Dosage: 81 MG, UNK
  10. AMBIEN [Concomitant]
     Active Substance: ZOLPIDEM TARTRATE
     Dosage: 5 MG, UNK
  11. TRAMADOL [Concomitant]
     Active Substance: TRAMADOL
     Indication: PAIN
     Dosage: 50 MG, UNK
  12. LYRICA [Concomitant]
     Active Substance: PREGABALIN
     Dosage: 100 MG, 2X/DAY
  13. PRILOSEC [Concomitant]
     Active Substance: OMEPRAZOLE MAGNESIUM
     Dosage: 40 MG, 2X/DAY (1 CAPSULE TWICE PER DAY)
  14. MOMETASONE [Concomitant]
     Active Substance: MOMETASONE
     Dosage: 50 ?G, 1X/DAY
     Route: 045
  15. CALCIUM CITRATE [Concomitant]
     Active Substance: CALCIUM CITRATE
     Dosage: UNK
  16. POTASSIUM CHLORIDE. [Concomitant]
     Active Substance: POTASSIUM CHLORIDE
     Dosage: 20 MEQ, 2X/DAY (ONE TABLET TWICE DAILY)
  17. CELEXA [Concomitant]
     Active Substance: CITALOPRAM HYDROBROMIDE
     Indication: ANXIETY
     Dosage: 40 MG, 1X/DAY
  18. TIKOSYN [Suspect]
     Active Substance: DOFETILIDE
     Indication: ATRIAL FIBRILLATION
     Dosage: 250 ?G, 2X/DAY
  19. GLACEX [Concomitant]
     Indication: FLUID RETENTION
     Dosage: UNK, AS NEEDED (ONE TO TWO AS NEEDED)
  20. METOPROLOL TARTRATE. [Concomitant]
     Active Substance: METOPROLOL TARTRATE
     Dosage: 25 MG, 2X/DAY
  21. FEXOFENADINE [Concomitant]
     Active Substance: FEXOFENADINE\FEXOFENADINE HYDROCHLORIDE
     Dosage: 180 MG, 1X/DAY

REACTIONS (1)
  - Respiratory disorder [Not Recovered/Not Resolved]

NARRATIVE: CASE EVENT DATE: 20150218
